FAERS Safety Report 4405579-1 (Version None)
Quarter: 2004Q3

REPORT INFORMATION
  Report Type: 
  Country: None (occurrence: None)
  Receive Date: 20040723
  Receipt Date: 20031006
  Transmission Date: 20050211
  Serious: No
  Sender: FDA-Public Use
  Company Number: US-GLAXOSMITHKLINE-A0428973A

PATIENT
  Age: 77 Year
  Sex: Female

DRUGS (2)
  1. AVANDIA [Suspect]
     Dosage: 8MG PER DAY
     Route: 048
  2. GLUCOTROL XL [Concomitant]

REACTIONS (3)
  - JOINT SWELLING [None]
  - PAIN IN EXTREMITY [None]
  - WEIGHT INCREASED [None]
